FAERS Safety Report 15451236 (Version 2)
Quarter: 2019Q2

REPORT INFORMATION
  Report Type: Report from Study
  Country: AU (occurrence: AU)
  Receive Date: 20181001
  Receipt Date: 20190401
  Transmission Date: 20190711
  Serious: Yes (Other)
  Sender: FDA-Public Use
  Company Number: PHHY2018AU106685

PATIENT
  Sex: Female

DRUGS (1)
  1. COSENTYX [Suspect]
     Active Substance: SECUKINUMAB
     Indication: PSORIATIC ARTHROPATHY
     Dosage: 300 MG, QMO
     Route: 058
     Dates: start: 20180813

REACTIONS (7)
  - Crying [Unknown]
  - Haematuria [Unknown]
  - Coeliac disease [Unknown]
  - Urinary tract infection [Unknown]
  - Oral herpes [Unknown]
  - Abdominal discomfort [Unknown]
  - Pain [Unknown]

NARRATIVE: CASE EVENT DATE: 2018
